FAERS Safety Report 10658074 (Version 4)
Quarter: 2015Q1

REPORT INFORMATION
  Report Type: Spontaneous
  Country: GB (occurrence: GB)
  Receive Date: 20141217
  Receipt Date: 20150121
  Transmission Date: 20150720
  Serious: Yes (Hospitalization, Other)
  Sender: FDA-Public Use
  Company Number: GB-TEVA-525678ISR

PATIENT
  Age: 51 Year
  Sex: Female
  Weight: 89 kg

DRUGS (4)
  1. LANSOPRAZOLE. [Suspect]
     Active Substance: LANSOPRAZOLE
     Route: 065
     Dates: start: 20140811, end: 20141002
  2. SERTRALINE [Concomitant]
     Active Substance: SERTRALINE HYDROCHLORIDE
     Route: 065
     Dates: start: 201406
  3. COLPERMIN [Concomitant]
     Dosage: 3 DOSAGE FORMS DAILY; GASTRO-RESISTANT CAPSULE
     Dates: start: 20140926
  4. TRAZODONE [Concomitant]
     Active Substance: TRAZODONE HYDROCHLORIDE
     Route: 065
     Dates: start: 201406

REACTIONS (27)
  - Peripheral swelling [Unknown]
  - Abdominal pain upper [Unknown]
  - Chest pain [Unknown]
  - Muscle spasms [Unknown]
  - Vaginal prolapse [Unknown]
  - Hypoaesthesia [Unknown]
  - Diarrhoea [Unknown]
  - Abdominal discomfort [Unknown]
  - Myalgia [Unknown]
  - Vaginal disorder [Unknown]
  - Local swelling [Unknown]
  - Cardiac disorder [Unknown]
  - Vertigo [Unknown]
  - Pain in extremity [Unknown]
  - Suicidal ideation [Unknown]
  - Influenza like illness [Unknown]
  - Weight decreased [Unknown]
  - Arthralgia [Unknown]
  - Anxiety [Unknown]
  - Vaginal haemorrhage [Unknown]
  - Musculoskeletal stiffness [Unknown]
  - Constipation [Unknown]
  - Insomnia [Unknown]
  - Dehydration [Unknown]
  - Dyspepsia [Unknown]
  - Swelling face [Unknown]
  - Panic attack [Unknown]

NARRATIVE: CASE EVENT DATE: 201408
